FAERS Safety Report 5263896-X (Version None)
Quarter: 2007Q1

REPORT INFORMATION
  Report Type: 
  Country: None (occurrence: None)
  Receive Date: 20061213
  Receipt Date: 20060113
  Transmission Date: 20070707
  Serious: Yes (Other)
  Sender: FDA-Public Use
  Company Number: 2006UW00686

PATIENT
  Age: 62 Year
  Sex: Female
  Weight: 54.431 kg

DRUGS (4)
  1. IRESSA [Suspect]
     Indication: NON-SMALL CELL LUNG CANCER
     Dates: start: 20030101
  2. LIPITOR [Concomitant]
  3. ZETIA [Concomitant]
  4. DYAZIDE [Concomitant]

REACTIONS (2)
  - ONYCHOMADESIS [None]
  - ONYCHOMYCOSIS [None]
